FAERS Safety Report 5431175-3 (Version None)
Quarter: 2007Q3

REPORT INFORMATION
  Report Type: 
  Country: None (occurrence: None)
  Receive Date: 20070830
  Receipt Date: 20070315
  Transmission Date: 20080115
  Serious: No
  Sender: FDA-Public Use
  Company Number: A0643378A

PATIENT
  Age: 50 Year
  Sex: Female

DRUGS (4)
  1. WELLBUTRIN XL [Suspect]
     Indication: DEPRESSION
     Dosage: 450MG PER DAY
     Route: 048
     Dates: start: 20060801
  2. AMBIEN [Concomitant]
  3. LAMISIL [Concomitant]
  4. YASMIN [Concomitant]

REACTIONS (6)
  - ANXIETY [None]
  - CONFUSIONAL STATE [None]
  - DRUG INTERACTION [None]
  - INSOMNIA [None]
  - TINNITUS [None]
  - TREMOR [None]
